FAERS Safety Report 25689414 (Version 1)
Quarter: 2025Q3

REPORT INFORMATION
  Report Type: Spontaneous
  Country: US (occurrence: US)
  Receive Date: 20250818
  Receipt Date: 20250818
  Transmission Date: 20251021
  Serious: Yes (Other)
  Sender: ALEXION PHARMACEUTICALS
  Company Number: US-ASTRAZENECA-202507GLO029168US

PATIENT
  Age: 74 Year
  Sex: Male

DRUGS (1)
  1. ACALABRUTINIB [Suspect]
     Active Substance: ACALABRUTINIB
     Indication: Waldenstrom^s macroglobulinaemia
     Route: 065

REACTIONS (4)
  - Panniculitis [Recovered/Resolved]
  - Cutaneous lymphoma [Recovered/Resolved]
  - Superficial inflammatory dermatosis [Recovered/Resolved]
  - Off label use [Unknown]
